FAERS Safety Report 25453696 (Version 1)
Quarter: 2025Q2

REPORT INFORMATION
  Report Type: Spontaneous
  Country: ES (occurrence: ES)
  Receive Date: 20250619
  Receipt Date: 20250619
  Transmission Date: 20250717
  Serious: Yes (Hospitalization, Other)
  Sender: AUROBINDO
  Company Number: ES-AEMPS-1689107

PATIENT
  Age: 40 Year
  Sex: Male

DRUGS (3)
  1. PIPERACILLIN AND TAZOBACTAM [Suspect]
     Active Substance: PIPERACILLIN SODIUM\TAZOBACTAM SODIUM
     Indication: Cellulitis
     Dosage: 1 DOSAGE FORM, 3 TIMES A DAY [2000MG/250MG CADA 8 HORAS]
     Route: 042
     Dates: start: 20250515, end: 20250516
  2. CLINDAMYCIN HYDROCHLORIDE [Suspect]
     Active Substance: CLINDAMYCIN HYDROCHLORIDE
     Indication: Cellulitis
     Dosage: 600 MILLIGRAM, 3 TIMES A DAY [600MG CADA 8 HORAS]
     Route: 042
     Dates: start: 20250516, end: 20250521
  3. CEFAZOLIN SODIUM [Suspect]
     Active Substance: CEFAZOLIN SODIUM
     Indication: Cellulitis
     Dosage: 2000 MILLIGRAM, 3 TIMES A DAY [2000MG CADA 8 HORAS]
     Route: 042
     Dates: start: 20250516, end: 20250521

REACTIONS (1)
  - Hepatocellular injury [Recovering/Resolving]

NARRATIVE: CASE EVENT DATE: 20250519
